FAERS Safety Report 21083381 (Version 2)
Quarter: 2022Q4

REPORT INFORMATION
  Report Type: Spontaneous
  Country: US (occurrence: US)
  Receive Date: 20220714
  Receipt Date: 20221114
  Transmission Date: 20230112
  Serious: Yes (Other)
  Sender: FDA-Public Use
  Company Number: US-ORGANON-O2207USA000651

PATIENT
  Sex: Female

DRUGS (2)
  1. PREGNYL [Suspect]
     Active Substance: CHORIOGONADOTROPIN ALFA
     Dosage: UNK
     Dates: start: 2022
  2. STERILE WATER [Suspect]
     Active Substance: WATER
     Dosage: UNK
     Dates: start: 2022

REACTIONS (3)
  - Ascites [Unknown]
  - Therapeutic product effect incomplete [Unknown]
  - Ovarian cyst [Unknown]

NARRATIVE: CASE EVENT DATE: 20220101
